FAERS Safety Report 5409296-0 (Version None)
Quarter: 2007Q3

REPORT INFORMATION
  Report Type: 
  Country: None (occurrence: None)
  Receive Date: 20070807
  Receipt Date: 20070807
  Transmission Date: 20080115
  Serious: Yes (Hospitalization)
  Sender: FDA-Public Use
  Company Number: None

PATIENT
  Age: 49 Year
  Sex: Male
  Weight: 96.6162 kg

DRUGS (2)
  1. GEMZAR [Suspect]
     Indication: PANCREATIC CARCINOMA
     Dosage: 2150MG DAY 1, 8,15 IV DRIP
     Route: 041
     Dates: start: 20070717, end: 20070803
  2. ERLOTINIB/NOVASOY 150MG DAILY/3 TABS TWICE A DAY [Suspect]
     Indication: PANCREATIC CARCINOMA
     Dosage: 150MG QD /3TABS B.ID 28 DAYS CONTINOUS PO
     Route: 048
     Dates: start: 20070717, end: 20070803

REACTIONS (1)
  - NAUSEA [None]
